FAERS Safety Report 9472410 (Version 1)
Quarter: 2013Q3

REPORT INFORMATION
  Report Type: Spontaneous
  Country: DE (occurrence: DE)
  Receive Date: 20130823
  Receipt Date: 20130823
  Transmission Date: 20140515
  Serious: Yes (Other)
  Sender: FDA-Public Use
  Company Number: DE-MYLANLABS-2013S1017828

PATIENT
  Sex: Female
  Weight: 2.15 kg

DRUGS (2)
  1. CITALOPRAM [Suspect]
     Dosage: 60 [MG/D ]
     Route: 064
  2. FOLIC ACID [Concomitant]
     Route: 064

REACTIONS (2)
  - Small for dates baby [Recovered/Resolved]
  - Exposure during pregnancy [Recovered/Resolved]
